FAERS Safety Report 16729567 (Version 1)
Quarter: 2019Q3

REPORT INFORMATION
  Report Type: Report from Study
  Country: US (occurrence: US)
  Receive Date: 20190822
  Receipt Date: 20190822
  Transmission Date: 20191005
  Serious: Yes (Hospitalization, Other)
  Sender: FDA-Public Use
  Company Number: US-TESAROUBC-2019-TSO01926-US

PATIENT
  Age: 59 Year
  Sex: Female

DRUGS (1)
  1. ZEJULA [Suspect]
     Active Substance: NIRAPARIB
     Indication: OVARIAN CANCER
     Dosage: 200 MG, QPM WITH OR WITHOUT FOOD
     Route: 048
     Dates: start: 20190514

REACTIONS (15)
  - Diarrhoea [Unknown]
  - Sepsis [Unknown]
  - Epistaxis [Unknown]
  - Oral mucosal blistering [Unknown]
  - Malaise [Unknown]
  - Abdominal pain upper [Unknown]
  - Renal failure [Unknown]
  - Cold sweat [Unknown]
  - Pain in jaw [Unknown]
  - Insomnia [Unknown]
  - Headache [Unknown]
  - Constipation [Unknown]
  - Fatigue [Unknown]
  - Abdominal distension [Unknown]
  - Nausea [Unknown]

NARRATIVE: CASE EVENT DATE: 201907
